FAERS Safety Report 4371142-4 (Version None)
Quarter: 2004Q2

REPORT INFORMATION
  Report Type: 
  Country: None (occurrence: None)
  Receive Date: 20040601
  Receipt Date: 20040518
  Transmission Date: 20050107
  Serious: Yes (Hospitalization, Disabling)
  Sender: FDA-Public Use
  Company Number: GB-JNJFOC-20040503859

PATIENT
  Age: 59 Year
  Sex: Female

DRUGS (10)
  1. REMICADE [Suspect]
     Indication: RHEUMATOID ARTHRITIS
     Dosage: 250 MG, INTRAVENOUS
     Route: 042
     Dates: start: 20030804
  2. METHOTREXATE [Concomitant]
  3. PREDNISOLONE [Concomitant]
  4. DISTAMINE (PENICILLAMINE) [Concomitant]
  5. DICLOFENAC SODIUM [Concomitant]
  6. CODIS (CODIS) [Concomitant]
  7. ATENOLOL [Concomitant]
  8. CO-PROXAMOL (APOREX) [Concomitant]
  9. BENDROFLUAZIDE (BENDROFLUMETHIAZIDE) [Concomitant]
  10. RISEDRONATE (RISEDRONATE SODIUM) [Concomitant]

REACTIONS (1)
  - AMYOTROPHIC LATERAL SCLEROSIS [None]
